FAERS Safety Report 12585833 (Version 1)
Quarter: 2016Q3

REPORT INFORMATION
  Report Type: Spontaneous
  Country: ZA (occurrence: ZA)
  Receive Date: 20160725
  Receipt Date: 20160725
  Transmission Date: 20161109
  Serious: Yes (Hospitalization, Other)
  Sender: FDA-Public Use
  Company Number: ZA-STRIDES ARCOLAB LIMITED-2016SP010408

PATIENT

DRUGS (2)
  1. NEVIRAPINE. [Suspect]
     Active Substance: NEVIRAPINE
     Indication: INFECTION PROPHYLAXIS
  2. NEVIRAPINE. [Suspect]
     Active Substance: NEVIRAPINE
     Indication: HIV INFECTION
     Dosage: UNK

REACTIONS (7)
  - Genital lesion [Unknown]
  - Pneumonia [Unknown]
  - Toxic epidermal necrolysis [Unknown]
  - Corneal lesion [Unknown]
  - Premature delivery [Unknown]
  - Oral disorder [Unknown]
  - Exposure during pregnancy [Unknown]
